FAERS Safety Report 6073192-9 (Version None)
Quarter: 2009Q1

REPORT INFORMATION
  Report Type: 
  Country: None (occurrence: None)
  Receive Date: 20090205
  Receipt Date: 20090128
  Transmission Date: 20090719
  Serious: Yes (Death)
  Sender: FDA-Public Use
  Company Number: WAES 0710USA02990

PATIENT
  Age: 87 Year
  Sex: Female

DRUGS (7)
  1. HYZAAR [Suspect]
     Indication: HYPERTENSION
     Dosage: 50MG/12.5MG/DAIL.Y, PO
     Route: 048
     Dates: start: 20070405, end: 20070913
  2. TAB CELECOX (CELECOXIB) [Suspect]
     Indication: RHEUMATOID ARTHRITIS
     Dosage: 100 MG/BID, PO
     Route: 048
     Dates: start: 20070628
  3. ACINON [Concomitant]
  4. MG OXIDE [Concomitant]
  5. PREDONINE [Concomitant]
  6. PURSENNID [Concomitant]
  7. FLUVOXAMINE MALEATE [Concomitant]

REACTIONS (2)
  - ACUTE MYOCARDIAL INFARCTION [None]
  - HAEMOCONCENTRATION [None]
